FAERS Safety Report 5166608-3 (Version None)
Quarter: 2006Q4

REPORT INFORMATION
  Report Type: 
  Country: None (occurrence: None)
  Receive Date: 20061207
  Receipt Date: 20061128
  Transmission Date: 20070319
  Serious: Yes (Hospitalization)
  Sender: FDA-Public Use
  Company Number: US-AMGEN-US201571

PATIENT

DRUGS (1)
  1. ARANESP [Suspect]
     Indication: ANAEMIA
     Route: 065
     Dates: start: 20060501

REACTIONS (3)
  - HAEMOGLOBIN DECREASED [None]
  - HOSPITALISATION [None]
  - THERAPEUTIC RESPONSE DECREASED [None]
